FAERS Safety Report 6337292-8 (Version None)
Quarter: 2009Q3

REPORT INFORMATION
  Report Type: 
  Country: None (occurrence: None)
  Receive Date: 20090901
  Receipt Date: 20090901
  Transmission Date: 20100115
  Serious: Yes (Hospitalization)
  Sender: FDA-Public Use
  Company Number: None

PATIENT
  Age: 36 Year
  Sex: Female
  Weight: 81.6475 kg

DRUGS (1)
  1. ALLI [Suspect]
     Indication: WEIGHT CONTROL
     Dosage: 10MG 3 DAILY PO
     Route: 048
     Dates: start: 20060416, end: 20090404

REACTIONS (2)
  - GASTROINTESTINAL CARCINOMA [None]
  - INTESTINAL POLYP [None]
